FAERS Safety Report 9058649 (Version 2)
Quarter: 2013Q2

REPORT INFORMATION
  Report Type: Spontaneous
  Country: US (occurrence: US)
  Receive Date: 20130204
  Receipt Date: 20130524
  Transmission Date: 20140414
  Serious: Yes (Other)
  Sender: FDA-Public Use
  Company Number: US-ASTRAZENECA-2013SE05737

PATIENT
  Age: 47 Day
  Sex: Female
  Weight: 3.7 kg

DRUGS (3)
  1. SYNAGIS [Suspect]
     Dosage: 50 MILLIGRAMS/0.5 MILLILITERS, 15 MILLIGRAMS/KILOGRAMS MONTHLY
     Route: 030
     Dates: start: 20121221
  2. SYNAGIS [Suspect]
     Dosage: 50 MILLIGRAMS/0.5 MILLILITERS, 15 MILLIGRAMS/KILOGRAMS MONTHLY
     Route: 030
     Dates: start: 20130124
  3. POLIVITS/ FE DRO [Concomitant]

REACTIONS (1)
  - Anaphylactic reaction [Recovered/Resolved]
